FAERS Safety Report 22820308 (Version 2)
Quarter: 2023Q4

REPORT INFORMATION
  Report Type: Other
  Country: CZ (occurrence: CZ)
  Receive Date: 20230814
  Receipt Date: 20231207
  Transmission Date: 20240109
  Serious: Yes (Hospitalization)
  Sender: FDA-Public Use
  Company Number: CZ-CELLTRION HEALTHCARE HUNGARY KFT-2022CZ013912

PATIENT

DRUGS (6)
  1. TAFASITAMAB [Suspect]
     Active Substance: TAFASITAMAB
     Indication: Follicular lymphoma
     Dosage: 12 MG/KG (1020MG) (DAYS 1, 8, 15, 22 OF CYCLES 1 TO 3 THEN DAYS 1 AND 15 OF CYCLES 4 TO 12)
     Route: 042
     Dates: start: 20221018
  2. TAFASITAMAB [Suspect]
     Active Substance: TAFASITAMAB
     Indication: Marginal zone lymphoma
     Dosage: 12 MG/KG (1020MG) (DAYS 1, 8, 15, 22 OF CYCLES 1 TO 3 THEN DAYS 1 AND 15 OF CYCLES 4 TO 12)
     Route: 042
     Dates: start: 20220802, end: 20220809
  3. RITUXIMAB [Suspect]
     Active Substance: RITUXIMAB
     Indication: Follicular lymphoma
     Dosage: 375 MILLIGRAM/SQ. METER
     Route: 042
     Dates: start: 20221025
  4. RITUXIMAB [Suspect]
     Active Substance: RITUXIMAB
     Indication: Marginal zone lymphoma
     Dosage: 375 MILLIGRAM/SQ. METER(787.5 MG) (DAYS 1, 8, 15, 22 OF CYCLE 1 THEN DAY 1 OF CYCLES 2 TO 5)
     Route: 042
     Dates: start: 20220802, end: 20220809
  5. LENALIDOMIDE [Suspect]
     Active Substance: LENALIDOMIDE
     Indication: Follicular lymphoma
     Dosage: 20 MILLIGRAM, DAILY, (DAYS 1 TO 21 OF CYCLES 1 TO 12)
     Route: 048
     Dates: start: 20220802, end: 20220807
  6. LENALIDOMIDE [Suspect]
     Active Substance: LENALIDOMIDE
     Indication: Marginal zone lymphoma
     Dosage: 15 MILLIGRAM
     Route: 048
     Dates: start: 20221025

REACTIONS (1)
  - Infection [Not Recovered/Not Resolved]

NARRATIVE: CASE EVENT DATE: 20220809
